FAERS Safety Report 10491949 (Version 1)
Quarter: 2014Q4

REPORT INFORMATION
  Report Type: Spontaneous
  Country: US (occurrence: US)
  Receive Date: 20141002
  Receipt Date: 20141002
  Transmission Date: 20150528
  Serious: No
  Sender: FDA-Public Use
  Company Number: US-GLAXOSMITHKLINE-A1062701A

PATIENT
  Sex: Female

DRUGS (7)
  1. HORMONE REPLACEMENT [Concomitant]
     Route: 062
  2. ADVAIR HFA [Suspect]
     Active Substance: FLUTICASONE PROPIONATE\SALMETEROL XINAFOATE
     Indication: EMPHYSEMA
     Dosage: 2PUFF TWICE PER DAY
     Route: 055
  3. LISINOPRIL. [Concomitant]
     Active Substance: LISINOPRIL
  4. GABAPENTIN. [Concomitant]
     Active Substance: GABAPENTIN
  5. SERTRALINE HYDROCHLORIDE. [Concomitant]
     Active Substance: SERTRALINE HYDROCHLORIDE
  6. MORPHINE [Concomitant]
     Active Substance: MORPHINE
  7. OXYCODONE [Concomitant]
     Active Substance: OXYCODONE

REACTIONS (4)
  - Off label use [Unknown]
  - Dyspnoea [Not Recovered/Not Resolved]
  - Dizziness [Unknown]
  - Treatment noncompliance [Unknown]
